FAERS Safety Report 11018579 (Version 2)
Quarter: 2015Q2

REPORT INFORMATION
  Report Type: Spontaneous
  Country: US (occurrence: US)
  Receive Date: 20150412
  Receipt Date: 20150524
  Transmission Date: 20150821
  Serious: Yes (Other)
  Sender: FDA-Public Use
  Company Number: US-JNJFOC-20130307972

PATIENT
  Sex: Female

DRUGS (3)
  1. CARBOPLATIN. [Suspect]
     Active Substance: CARBOPLATIN
     Indication: OVARIAN EPITHELIAL CANCER RECURRENT
     Dosage: CYCLE 1 DAY 1 (C1D1) OVER 1 TO 3 H
     Route: 042
  2. TECHNETIUM SULFIDE TC 99M COLLOID [Suspect]
     Active Substance: TECHNETIUM TC-99M SULFUR COLLOID
     Indication: OVARIAN EPITHELIAL CANCER RECURRENT
     Dosage: CYCLE 1 DAY 1 (C1D1) X 1
     Route: 042
  3. DOXORUBICIN HYDROCHLORIDE. [Suspect]
     Active Substance: DOXORUBICIN HYDROCHLORIDE
     Indication: OVARIAN EPITHELIAL CANCER RECURRENT
     Dosage: CYCLE 1 DAY 1 (C1D1)
     Route: 042

REACTIONS (1)
  - Palmar-plantar erythrodysaesthesia syndrome [Unknown]
